FAERS Safety Report 20114911 (Version 2)
Quarter: 2021Q4

REPORT INFORMATION
  Report Type: Spontaneous
  Country: US (occurrence: US)
  Receive Date: 20211125
  Receipt Date: 20211127
  Transmission Date: 20220303
  Serious: No
  Sender: FDA-Public Use
  Company Number: US-SANOFI-00860589

PATIENT
  Age: 67 Year
  Sex: Male

DRUGS (2)
  1. LANTUS [Suspect]
     Active Substance: INSULIN GLARGINE
     Indication: Type 2 diabetes mellitus
     Dosage: 40 IU, QD
  2. LANTUS [Suspect]
     Active Substance: INSULIN GLARGINE
     Indication: Blood glucose increased

REACTIONS (4)
  - Visual impairment [Unknown]
  - Blood pressure abnormal [Unknown]
  - Feeling abnormal [Unknown]
  - Drug effect faster than expected [Unknown]
